FAERS Safety Report 7830451-4 (Version None)
Quarter: 2011Q4

REPORT INFORMATION
  Report Type: 
  Country: None (occurrence: None)
  Receive Date: 20111021
  Receipt Date: 20111018
  Transmission Date: 20120403
  Serious: Yes (Hospitalization)
  Sender: FDA-Public Use
  Company Number: US-ACTELION-A-US2011-55468

PATIENT

DRUGS (3)
  1. TRACLEER [Suspect]
     Indication: PULMONARY ARTERIAL HYPERTENSION
     Dosage: UNK
     Route: 048
     Dates: start: 20091208
  2. REMODULIN [Suspect]
  3. CALCIUM CHANNEL BLOCKERS [Concomitant]

REACTIONS (2)
  - ALCOHOL ABUSE [None]
  - CELLULITIS [None]
